FAERS Safety Report 10213091 (Version 3)
Quarter: 2014Q3

REPORT INFORMATION
  Report Type: Spontaneous
  Country: US (occurrence: US)
  Receive Date: 20140603
  Receipt Date: 20140723
  Transmission Date: 20150326
  Serious: Yes (Death, Other)
  Sender: FDA-Public Use
  Company Number: US-AMGEN-USASP2014039678

PATIENT
  Age: 70 Year
  Sex: Female
  Weight: 74.38 kg

DRUGS (1)
  1. PROLIA [Suspect]
     Active Substance: DENOSUMAB
     Indication: OSTEOPOROSIS POSTMENOPAUSAL
     Dosage: 60 MG, Q6MO
     Route: 058
     Dates: start: 20121219

REACTIONS (5)
  - Metastases to bone [Unknown]
  - Lung cancer metastatic [Fatal]
  - Metastases to chest wall [Unknown]
  - Metastases to the mediastinum [Unknown]
  - Metastases to neck [Unknown]

NARRATIVE: CASE EVENT DATE: 20131217
